FAERS Safety Report 4889552-5 (Version None)
Quarter: 2006Q1

REPORT INFORMATION
  Report Type: 
  Country: None (occurrence: None)
  Receive Date: 20060124
  Receipt Date: 20060106
  Transmission Date: 20060701
  Serious: Yes (Hospitalization)
  Sender: FDA-Public Use
  Company Number: 2006UW00330

PATIENT
  Age: 46 Year
  Sex: Female
  Weight: 46.8 kg

DRUGS (4)
  1. ACCOLATE [Suspect]
     Indication: SCAR
     Route: 048
     Dates: end: 20051201
  2. EXTRA STRENGTH TYLENOL [Concomitant]
     Dosage: 2 TABS Q3H
  3. FOSAMAX [Concomitant]
  4. VITAMINS [Concomitant]

REACTIONS (2)
  - CHOLESTASIS [None]
  - HEPATITIS [None]
